FAERS Safety Report 8928603 (Version 2)
Quarter: 2013Q1

REPORT INFORMATION
  Report Type: Spontaneous
  Country: US (occurrence: US)
  Receive Date: 20121128
  Receipt Date: 20130205
  Transmission Date: 20140127
  Serious: Yes (Hospitalization)
  Sender: FDA-Public Use
  Company Number: US-B.I. PHARMACEUTICALS,INC./RIDGEFIELD-2012-BI-01092BP

PATIENT
  Sex: Male
  Weight: 127.46 kg

DRUGS (12)
  1. SPIRIVA [Suspect]
     Indication: CHRONIC OBSTRUCTIVE PULMONARY DISEASE
     Dosage: 18 MCG
     Route: 055
     Dates: start: 20120124, end: 20121128
  2. ASA [Concomitant]
     Dosage: 81 MG
  3. LISINOPRIL [Concomitant]
     Dosage: 40 MG
  4. CARVEDILOL [Concomitant]
     Dosage: 12.5 MG
  5. LANTUS [Concomitant]
  6. HUMALOG [Concomitant]
  7. METFORMIN [Concomitant]
     Dosage: 2550 MG
  8. JANUVIA [Concomitant]
     Dosage: 100 MG
  9. DEXILANT [Concomitant]
     Dosage: 60 MG
  10. SIMVASTATIN [Concomitant]
     Dosage: 10 MG
  11. NEXIUM [Concomitant]
     Dosage: 40 MG
  12. NIASPAN [Concomitant]
     Dosage: 750 MG

REACTIONS (6)
  - Dyspnoea [Recovered/Resolved]
  - Angioedema [Recovered/Resolved]
  - Urticaria [Recovered/Resolved]
  - Wheezing [Unknown]
  - Lip blister [Unknown]
  - Rash generalised [Unknown]
